FAERS Safety Report 7286114-X (Version None)
Quarter: 2011Q1

REPORT INFORMATION
  Report Type: 
  Country: None (occurrence: None)
  Receive Date: 20110210
  Receipt Date: 20110131
  Transmission Date: 20110831
  Serious: Yes (Hospitalization)
  Sender: FDA-Public Use
  Company Number: JP-ELI_LILLY_AND_COMPANY-JP201102000385

PATIENT
  Age: 75 Year
  Sex: Female

DRUGS (3)
  1. PLETAL [Concomitant]
     Route: 048
  2. LEVOTOMIN [Concomitant]
     Route: 065
  3. ZYPREXA [Suspect]
     Dosage: 2.5 MG, DAILY (1/D)
     Route: 048

REACTIONS (2)
  - RENAL FAILURE [None]
  - URINARY RETENTION [None]
